FAERS Safety Report 4449961-5 (Version None)
Quarter: 2004Q3

REPORT INFORMATION
  Report Type: 
  Country: None (occurrence: None)
  Receive Date: 20040910
  Receipt Date: 20040607
  Transmission Date: 20050211
  Serious: Yes (Other)
  Sender: FDA-Public Use
  Company Number: S04-USA-03101-01

PATIENT
  Age: 45 Year
  Sex: Female

DRUGS (10)
  1. LEXAPRO [Suspect]
     Indication: BIPOLAR DISORDER
     Dosage: 5 MG QD PO
     Route: 048
     Dates: start: 20040101, end: 20040101
  2. LEXAPRO [Suspect]
     Indication: BIPOLAR DISORDER
     Dosage: 15 MG QD PO
     Route: 048
     Dates: start: 20040101
  3. ULTRAM [Suspect]
     Indication: PHARYNGOLARYNGEAL PAIN
     Dosage: UNK
     Route: 065
     Dates: end: 20040201
  4. ULTRAM [Concomitant]
  5. VICODIN [Concomitant]
  6. PRILOSEC [Concomitant]
  7. ZANTAC [Concomitant]
  8. SYNTHROID [Concomitant]
  9. ATENOLOL [Concomitant]
  10. HORMONE [Concomitant]

REACTIONS (5)
  - ABNORMAL DREAMS [None]
  - CONFUSIONAL STATE [None]
  - MANIA [None]
  - SUICIDAL IDEATION [None]
  - SUICIDE ATTEMPT [None]
